FAERS Safety Report 12583418 (Version 1)
Quarter: 2016Q3

REPORT INFORMATION
  Report Type: Spontaneous
  Country: US (occurrence: US)
  Receive Date: 20160722
  Receipt Date: 20160722
  Transmission Date: 20161109
  Serious: Yes (Other)
  Sender: FDA-Public Use
  Company Number: US-PFIZER INC-2016350783

PATIENT
  Age: 69 Year
  Sex: Female

DRUGS (1)
  1. XELJANZ [Suspect]
     Active Substance: TOFACITINIB CITRATE
     Dosage: STRENGTH 5MG

REACTIONS (8)
  - Asthenia [Unknown]
  - Insomnia [Unknown]
  - Pyrexia [Unknown]
  - Blood count abnormal [Unknown]
  - Tinea infection [Unknown]
  - Lung infection [Unknown]
  - Chills [Unknown]
  - Oropharyngeal pain [Unknown]
